FAERS Safety Report 4901956-0 (Version None)
Quarter: 2006Q1

REPORT INFORMATION
  Report Type: 
  Country: None (occurrence: None)
  Receive Date: 20060203
  Receipt Date: 20060203
  Transmission Date: 20060701
  Serious: Yes (Hospitalization)
  Sender: FDA-Public Use
  Company Number: None

PATIENT
  Age: 41 Year
  Sex: Female
  Weight: 86.637 kg

DRUGS (8)
  1. TAXOTERE [Suspect]
     Indication: BREAST CANCER
     Dosage: 100 MG/M2
     Dates: start: 20050928, end: 20051026
  2. TAXOTERE [Suspect]
     Indication: BREAST CANCER
     Dosage: 100 MG/M2
     Dates: start: 20051012, end: 20051113
  3. SUDAFED 12 HOUR [Concomitant]
  4. ATIVAN [Concomitant]
  5. OMEPRAZOLE [Concomitant]
  6. MULTI-VITAMIN [Concomitant]
  7. TYLENOL PRN [Concomitant]
  8. ADVIL [Concomitant]

REACTIONS (1)
  - CATHETER RELATED INFECTION [None]
